FAERS Safety Report 8359786-6 (Version None)
Quarter: 2012Q2

REPORT INFORMATION
  Report Type: 
  Country: None (occurrence: None)
  Receive Date: 20120515
  Receipt Date: 20120508
  Transmission Date: 20120825
  Serious: Yes (Other)
  Sender: FDA-Public Use
  Company Number: PHHY2012VE040537

PATIENT
  Sex: Female

DRUGS (5)
  1. VITAMIN D [Concomitant]
     Indication: OSTEOPOROSIS
     Dosage: 2000 IU, QD
     Dates: start: 20030101
  2. CALCIUM [Concomitant]
     Dosage: 1500 MG, QD
     Dates: start: 20030101
  3. ZOLEDRONOC ACID [Suspect]
     Dosage: 5 MG, UNK
     Route: 042
     Dates: start: 20110520
  4. ZOLEDRONOC ACID [Suspect]
     Indication: OSTEOPOROSIS
     Dosage: 5 MG, UNK
     Route: 042
     Dates: start: 20090520
  5. ZOLEDRONOC ACID [Suspect]
     Dosage: 5 MG, UNK
     Route: 042
     Dates: start: 20100520

REACTIONS (3)
  - COUGH [None]
  - HYPERSENSITIVITY [None]
  - PAIN [None]
